FAERS Safety Report 9690037 (Version 1)
Quarter: 2013Q4

REPORT INFORMATION
  Report Type: Report from Study
  Country: JP (occurrence: JP)
  Receive Date: 20131115
  Receipt Date: 20131115
  Transmission Date: 20140711
  Serious: Yes (Other)
  Sender: FDA-Public Use
  Company Number: JP-ROCHE-1303368

PATIENT
  Sex: 0

DRUGS (5)
  1. BEVACIZUMAB [Suspect]
     Indication: COLORECTAL CANCER METASTATIC
     Dosage: 2-WEEK CYCLES
     Route: 042
  2. FLUOROURACIL [Concomitant]
     Dosage: 2-WEEK CYCLES
     Route: 040
  3. FLUOROURACIL [Concomitant]
     Route: 041
  4. LEUCOVORIN [Concomitant]
     Dosage: 2-WEEK CYCLES
     Route: 065
  5. OXALIPLATIN [Concomitant]
     Dosage: 2-WEEK CYCLES
     Route: 065

REACTIONS (8)
  - Hypertension [Unknown]
  - Haemorrhage [Unknown]
  - Wound complication [Unknown]
  - Nausea [Unknown]
  - Diarrhoea [Unknown]
  - Mucosal inflammation [Unknown]
  - Fatigue [Unknown]
  - Neuropathy peripheral [Unknown]
